FAERS Safety Report 10046668 (Version 2)
Quarter: 2014Q2

REPORT INFORMATION
  Report Type: Spontaneous
  Country: US (occurrence: US)
  Receive Date: 20140331
  Receipt Date: 20140506
  Transmission Date: 20141212
  Serious: Yes (Death, Other)
  Sender: FDA-Public Use
  Company Number: US-AMGEN-USASP2014021127

PATIENT
  Age: 85 Year
  Sex: Male
  Weight: 68.48 kg

DRUGS (3)
  1. ARANESP [Suspect]
     Indication: HAEMOGLOBIN DECREASED
     Dosage: 500 MUG, Q3WK
     Route: 058
     Dates: start: 20131112, end: 20140128
  2. CISPLATIN [Concomitant]
     Indication: LUNG NEOPLASM MALIGNANT
     Dosage: 12 MG, UNK
     Route: 042
     Dates: start: 20131022, end: 20140107
  3. ETOPOSIDE [Concomitant]
     Indication: LUNG NEOPLASM MALIGNANT
     Dosage: 170 MG, UNK
     Route: 042
     Dates: start: 20131022, end: 20140107

REACTIONS (7)
  - Renal failure chronic [Unknown]
  - Myelodysplastic syndrome [Unknown]
  - Lung neoplasm malignant [Fatal]
  - Metastases to bone [Unknown]
  - Anaemia [Unknown]
  - Blood magnesium decreased [Unknown]
  - Cough [Unknown]
